FAERS Safety Report 5314574-X (Version None)
Quarter: 2007Q2

REPORT INFORMATION
  Report Type: 
  Country: None (occurrence: None)
  Receive Date: 20070502
  Receipt Date: 20070426
  Transmission Date: 20071010
  Serious: Yes (Hospitalization)
  Sender: FDA-Public Use
  Company Number: US-AVENTIS-200713013US

PATIENT
  Age: 69 Year
  Sex: Male

DRUGS (5)
  1. LANTUS [Suspect]
     Dates: start: 20061001
  2. HUMALOG                            /00030501/ [Concomitant]
     Dosage: DOSE: UNK
  3. CYTOXAN [Concomitant]
     Dosage: DOSE: UNK
  4. ALTACE [Concomitant]
     Dosage: DOSE: UNK
  5. PREDNISONE TAB [Concomitant]
     Dosage: DOSE: TAPERING DOSES, NOW ON 40 MG

REACTIONS (2)
  - BLOOD GLUCOSE INCREASED [None]
  - BRONCHITIS [None]
